FAERS Safety Report 15240636 (Version 2)
Quarter: 2018Q3

REPORT INFORMATION
  Report Type: Spontaneous
  Country: US (occurrence: US)
  Receive Date: 20180804
  Receipt Date: 20180818
  Transmission Date: 20181010
  Serious: No
  Sender: FDA-Public Use
  Company Number: US-JNJFOC-20180726058

PATIENT
  Age: 58 Year
  Sex: Female

DRUGS (4)
  1. NIZORAL A?D [Suspect]
     Active Substance: KETOCONAZOLE
     Indication: DRY SKIN
     Dosage: STRENGTH 1%
     Route: 061
     Dates: start: 20180711, end: 20180717
  2. NIZORAL A?D [Suspect]
     Active Substance: KETOCONAZOLE
     Indication: DANDRUFF
     Dosage: STRENGTH 1%
     Route: 061
     Dates: start: 20180711, end: 20180717
  3. LEVOXYL [Concomitant]
     Active Substance: LEVOTHYROXINE SODIUM
     Indication: THYROID DISORDER
     Route: 065
  4. INSULIN [Concomitant]
     Active Substance: INSULIN NOS
     Indication: DIABETES MELLITUS
     Route: 065

REACTIONS (2)
  - Dandruff [Unknown]
  - Pruritus [Unknown]

NARRATIVE: CASE EVENT DATE: 20180712
